FAERS Safety Report 6402599-2 (Version None)
Quarter: 2009Q4

REPORT INFORMATION
  Report Type: 
  Country: None (occurrence: None)
  Receive Date: 20091009
  Receipt Date: 20090925
  Transmission Date: 20100525
  Serious: Yes (Hospitalization)
  Sender: FDA-Public Use
  Company Number: DSJ-2009-12106

PATIENT
  Age: 74 Year
  Sex: Female
  Weight: 55 kg

DRUGS (13)
  1. OLMESARTAN MEDOXOMIL [Suspect]
     Indication: HYPERTENSION
     Dosage: 20 MG (20 MG, 1 IN 1 D), PER ORAL
     Route: 048
     Dates: start: 20050101, end: 20090101
  2. TEGRETOL [Suspect]
     Indication: HYPOAESTHESIA
     Dosage: (3 IN 1 D),
     Dates: start: 20090605, end: 20090101
  3. BEZATATE SR (BEZAFIBRATE) (BEZAFIBRATE) [Concomitant]
  4. ACETYLSALICYLIC ACID SRT [Concomitant]
  5. OMEPRAZOLE (OMEPRAZOLE) (TABLET) (OMEPRAZOLE) [Concomitant]
  6. GASSAAL (SIMETICONE) (SIMETICONE) [Concomitant]
  7. TEPRENONE (TEPRENONE) (CAPSULE) (TEPRENONE) [Concomitant]
  8. NILDILART (NILVADIPINE) (TABLET) (NILVADIPINE) [Concomitant]
  9. NE-SOFT (TOCOPHERYL NICOTINATE) (TOCOPHERYL NICOTINATE) [Concomitant]
  10. BIOFERMIN SR (LACTOBACILLUS ACIDOPHILUS, BACILLUS SUBTILIS, STREPTOCOC [Concomitant]
  11. PICOSULFAT (SODIUM PICOSULFATE) (SODIUM PICOSULFATE) [Concomitant]
  12. PREDONINE (PREDNISOLONE) (PREDNISOLONE) [Concomitant]
  13. MUCOSTA (REBAMIPIDE) (REBAMIPIDE) [Concomitant]

REACTIONS (3)
  - ARTHRALGIA [None]
  - HYPOAESTHESIA [None]
  - TOXIC SKIN ERUPTION [None]
